FAERS Safety Report 4328337-5 (Version None)
Quarter: 2004Q1

REPORT INFORMATION
  Report Type: 
  Country: None (occurrence: None)
  Receive Date: 20040325
  Receipt Date: 20031126
  Transmission Date: 20041129
  Serious: Yes (Life-Threatening)
  Sender: FDA-Public Use
  Company Number: PHEH2003US08933

PATIENT
  Age: 5 Year
  Sex: Male
  Weight: 21.8 kg

DRUGS (5)
  1. TRILEPTAL [Suspect]
     Indication: EPILEPSY
     Dosage: 7 ML, Q12H, ORAL
     Route: 048
     Dates: start: 20030101, end: 20030701
  2. ZANAFLEX [Suspect]
     Indication: MUSCLE SPASTICITY
     Dosage: 2, QHS
  3. KLONOPIN [Concomitant]
  4. CLONIDINE [Concomitant]
  5. RISPERDAL [Concomitant]

REACTIONS (3)
  - ANGIONEUROTIC OEDEMA [None]
  - PHARYNGEAL OEDEMA [None]
  - TONGUE OEDEMA [None]
